FAERS Safety Report 8867159 (Version 1)
Quarter: 2012Q4

REPORT INFORMATION
  Report Type: 
  Country: US (occurrence: US)
  Receive Date: 20121025
  Receipt Date: 20121025
  Transmission Date: 20130627
  Serious: No
  Sender: FDA-Public Use
  Company Number: US-AMGEN-USASP2012015374

PATIENT
  Age: 58 Year
  Sex: Female

DRUGS (11)
  1. ENBREL [Suspect]
     Indication: PRODUCT USED FOR UNKNOWN INDICATION
     Dosage: 50 mg, qwk
     Route: 058
  2. PREDNISONE [Concomitant]
     Dosage: 2.5 mg, UNK
  3. METHOTREXATE [Concomitant]
     Dosage: 2.5 mg, UNK
  4. FLEXERIL                           /00821801/ [Concomitant]
     Dosage: 5 mg, UNK
  5. MAXZIDE [Concomitant]
     Dosage: UNK
  6. LOPRESSOR [Concomitant]
     Dosage: 50 mg, UNK
  7. FOLIC ACID [Concomitant]
     Dosage: UNK
  8. METFORMIN [Concomitant]
     Dosage: 500 mg, UNK
  9. NEURONTIN [Concomitant]
     Dosage: 100 mg, UNK
  10. PLAQUENIL                          /00072602/ [Concomitant]
     Dosage: 200 mg, UNK
  11. AMLODIPINE [Concomitant]
     Dosage: 5 mg, UNK

REACTIONS (2)
  - Eye pain [Unknown]
  - Nasopharyngitis [Unknown]
